FAERS Safety Report 6428529-5 (Version None)
Quarter: 2009Q4

REPORT INFORMATION
  Report Type: 
  Country: None (occurrence: None)
  Receive Date: 20091104
  Receipt Date: 20091104
  Transmission Date: 20100525
  Serious: Yes (Hospitalization)
  Sender: FDA-Public Use
  Company Number: None

PATIENT

DRUGS (2)
  1. RISPERIDONE [Suspect]
     Indication: HALLUCINATION
     Dosage: 1 MG EVERY DAY PO
     Route: 048
     Dates: start: 20090409, end: 20090902
  2. RISPERIDONE [Suspect]
     Indication: PSYCHOTIC DISORDER
     Dosage: 1 MG EVERY DAY PO
     Route: 048
     Dates: start: 20090409, end: 20090902

REACTIONS (1)
  - TRANSIENT ISCHAEMIC ATTACK [None]
